FAERS Safety Report 6784501-7 (Version None)
Quarter: 2010Q2

REPORT INFORMATION
  Report Type: 
  Country: None (occurrence: None)
  Receive Date: 20100622
  Receipt Date: 20100616
  Transmission Date: 20101027
  Serious: No
  Sender: FDA-Public Use
  Company Number: US-JNJFOC-20100605613

PATIENT
  Sex: Male

DRUGS (1)
  1. INVEGA SUSTENNA [Suspect]
     Indication: SCHIZOPHRENIA
     Route: 030

REACTIONS (2)
  - DRUG PRESCRIBING ERROR [None]
  - INCORRECT DOSE ADMINISTERED [None]
